FAERS Safety Report 7651584-1 (Version None)
Quarter: 2011Q3

REPORT INFORMATION
  Report Type: 
  Country: None (occurrence: None)
  Receive Date: 20110802
  Receipt Date: 20110727
  Transmission Date: 20111222
  Serious: Yes (Hospitalization, Other)
  Sender: FDA-Public Use
  Company Number: JP-B.I. PHARMACEUTICALS,INC./RIDGEFIELD-2010-BP-05316NB

PATIENT
  Sex: Male
  Weight: 67 kg

DRUGS (6)
  1. TRICHLORMETHIAZIDE [Suspect]
     Indication: HYPERTENSION
     Dosage: 1 MG
     Route: 048
     Dates: start: 20050226, end: 20100501
  2. MEVALOTIN/ PRAVASTATIN SOCIUM [Concomitant]
     Indication: HYPERLIPIDAEMIA
     Route: 048
     Dates: start: 19990101
  3. URALYT/ POTASSIUM CITRATE SODIUM CITRATE [Concomitant]
     Route: 048
     Dates: start: 19990101
  4. MICARDIS [Suspect]
     Indication: HYPERTENSION
     Dosage: 20 MG
     Route: 048
     Dates: start: 20040821, end: 20100501
  5. NORVASC [Suspect]
     Indication: HYPERTENSION
     Dosage: 5 MG
     Route: 048
     Dates: start: 19980620, end: 20100501
  6. URINORM [Suspect]
     Indication: HYPERURICAEMIA
     Dosage: 25 MG
     Route: 048
     Dates: start: 20050827, end: 20100501

REACTIONS (1)
  - HEPATITIS [None]
